FAERS Safety Report 12883175 (Version 1)
Quarter: 2016Q4

REPORT INFORMATION
  Report Type: Spontaneous
  Country: FR (occurrence: FR)
  Receive Date: 20161025
  Receipt Date: 20161025
  Transmission Date: 20170207
  Serious: Yes (Hospitalization)
  Sender: FDA-Public Use
  Company Number: FR-SA-2016SA191470

PATIENT
  Age: 80 Year
  Sex: Male

DRUGS (11)
  1. SPECIAFOLDINE [Concomitant]
     Active Substance: FOLIC ACID
     Dosage: 4/WEEK
  2. TAHOR [Concomitant]
     Active Substance: ATORVASTATIN CALCIUM
  3. ENDOXAN [Concomitant]
     Active Substance: CYCLOPHOSPHAMIDE
  4. VELCADE [Concomitant]
     Active Substance: BORTEZOMIB
  5. ZELITREX [Concomitant]
     Active Substance: VALACYCLOVIR HYDROCHLORIDE
     Indication: ANTIVIRAL PROPHYLAXIS
     Route: 048
     Dates: start: 20160610, end: 20160721
  6. REVLIMID [Suspect]
     Active Substance: LENALIDOMIDE
     Indication: PLASMACYTOMA
     Route: 048
     Dates: start: 20160708, end: 20160719
  7. RIFINAH [Suspect]
     Active Substance: ISONIAZID\RIFAMPIN
     Indication: ANTIBIOTIC PROPHYLAXIS
     Route: 048
     Dates: start: 20160610, end: 20160721
  8. BACTRIM [Suspect]
     Active Substance: SULFAMETHOXAZOLE\TRIMETHOPRIM
     Indication: OPPORTUNISTIC INFECTION PROPHYLAXIS
     Route: 048
     Dates: start: 20160610, end: 20160719
  9. DEXAMETHASONE. [Concomitant]
     Active Substance: DEXAMETHASONE
  10. LOVENOX [Concomitant]
     Active Substance: ENOXAPARIN SODIUM
  11. ZYLORIC [Concomitant]
     Active Substance: ALLOPURINOL

REACTIONS (1)
  - Drug reaction with eosinophilia and systemic symptoms [Recovered/Resolved]

NARRATIVE: CASE EVENT DATE: 20160718
